FAERS Safety Report 16977673 (Version 2)
Quarter: 2019Q4

REPORT INFORMATION
  Report Type: Spontaneous
  Country: US (occurrence: US)
  Receive Date: 20191031
  Receipt Date: 20191105
  Transmission Date: 20200122
  Serious: No
  Sender: FDA-Public Use
  Company Number: US-GLAXOSMITHKLINE-US2019192718

PATIENT
  Age: 92 Year
  Sex: Female

DRUGS (1)
  1. TUMS SMOOTHIES [Suspect]
     Active Substance: CALCIUM CARBONATE
     Indication: DYSPEPSIA
     Dosage: 3 DF, UNK

REACTIONS (3)
  - Dyspepsia [Unknown]
  - Drug ineffective [Unknown]
  - Condition aggravated [Unknown]

NARRATIVE: CASE EVENT DATE: 20191020
